FAERS Safety Report 23062914 (Version 1)
Quarter: 2023Q4

REPORT INFORMATION
  Report Type: Spontaneous
  Country: TR (occurrence: TR)
  Receive Date: 20231013
  Receipt Date: 20231013
  Transmission Date: 20240110
  Serious: Yes (Other)
  Sender: FDA-Public Use
  Company Number: TR-STRIDES ARCOLAB LIMITED-2023SP015504

PATIENT
  Age: 35 Year
  Sex: Male

DRUGS (3)
  1. OXYBUTYNIN [Suspect]
     Active Substance: OXYBUTYNIN
     Indication: Euphoric mood
     Dosage: UNK (LAST TWO YEARS) TABLET
     Route: 065
  2. OXYBUTYNIN [Suspect]
     Active Substance: OXYBUTYNIN
     Dosage: UNK (HIGH DOSE 20-30 PARTS (80-120 MG/DAY) (TABLET)
     Route: 065
  3. OXYBUTYNIN [Suspect]
     Active Substance: OXYBUTYNIN
     Dosage: 100 DOSAGE FORM (100 TABLETS) (RECEIVED ON  THE DAY OF THE CLINICAL VISIT) (TABLETS)
     Route: 065

REACTIONS (4)
  - Drug abuse [Unknown]
  - Substance-induced psychotic disorder [Recovered/Resolved]
  - Overdose [Unknown]
  - Off label use [Unknown]
